FAERS Safety Report 11529618 (Version 2)
Quarter: 2015Q3

REPORT INFORMATION
  Report Type: Spontaneous
  Country: US (occurrence: US)
  Receive Date: 20150921
  Receipt Date: 20150922
  Transmission Date: 20151125
  Serious: No
  Sender: FDA-Public Use
  Company Number: US-009507513-1509USA008441

PATIENT
  Age: 70 Year
  Sex: Male

DRUGS (3)
  1. PRILOSEC [Concomitant]
     Active Substance: OMEPRAZOLE MAGNESIUM
     Dosage: UNK
  2. TEMODAR [Suspect]
     Active Substance: TEMOZOLOMIDE
     Indication: BRAIN NEOPLASM
     Dosage: 2 PILLS ONCE DAILY, 180 MG EACH
     Route: 048
     Dates: start: 20150630, end: 20150717
  3. TEMODAR [Suspect]
     Active Substance: TEMOZOLOMIDE
     Dosage: 2 PILLS ONCE DAILY, 180 MG EACH
     Route: 048
     Dates: start: 20150817, end: 20150822

REACTIONS (1)
  - Drug ineffective [Unknown]

NARRATIVE: CASE EVENT DATE: 2015
